FAERS Safety Report 16696927 (Version 1)
Quarter: 2019Q3

REPORT INFORMATION
  Report Type: Spontaneous
  Country: US (occurrence: US)
  Receive Date: 20190813
  Receipt Date: 20190813
  Transmission Date: 20191004
  Serious: No
  Sender: FDA-Public Use
  Company Number: US-PFIZER INC-2019342790

PATIENT
  Age: 73 Year
  Sex: Female

DRUGS (3)
  1. LOSARTAN AND HYDROCHLOROTHIAZIDE [Concomitant]
     Active Substance: HYDROCHLOROTHIAZIDE\LOSARTAN POTASSIUM
     Indication: HYPERTENSION
     Dosage: UNK (50-12.5 MG)
  2. IBRANCE [Suspect]
     Active Substance: PALBOCICLIB
     Indication: BREAST CANCER METASTATIC
     Dosage: 125 MG, CYCLIC (125 MG BY MOUTH ONCE A DAY FOR 21 DAYS AND THEN OFF FOR 7 DAY)
     Route: 048
     Dates: start: 201706
  3. IBRANCE [Suspect]
     Active Substance: PALBOCICLIB
     Dosage: 125 MG, CYCLIC (125 MG BY MOUTH ONCE A DAY FOR 21 DAYS AND THEN OFF FOR 7 DAY)
     Route: 048
     Dates: start: 20190801

REACTIONS (6)
  - Balance disorder [Not Recovered/Not Resolved]
  - Dry eye [Recovered/Resolved]
  - Full blood count decreased [Unknown]
  - Feeling abnormal [Not Recovered/Not Resolved]
  - Visual impairment [Unknown]
  - Asthenia [Unknown]

NARRATIVE: CASE EVENT DATE: 20190703
